FAERS Safety Report 17134545 (Version 1)
Quarter: 2019Q4

REPORT INFORMATION
  Report Type: Spontaneous
  Country: CA (occurrence: CA)
  Receive Date: 20191210
  Receipt Date: 20191210
  Transmission Date: 20200122
  Serious: Yes (Other)
  Sender: FDA-Public Use
  Company Number: CA-PFIZER INC-2019528390

PATIENT
  Age: 25 Year
  Sex: Male

DRUGS (4)
  1. NYSTATIN. [Concomitant]
     Active Substance: NYSTATIN
     Dosage: UNK
  2. DOXYCYCLINE HYCLATE. [Suspect]
     Active Substance: DOXYCYCLINE HYCLATE
     Indication: PNEUMONIA
     Dosage: UNK
  3. REMICADE [Suspect]
     Active Substance: INFLIXIMAB
     Indication: CROHN^S DISEASE
     Dosage: 5 MG/KG, UNK
     Route: 042
  4. AMOXICILLIN. [Suspect]
     Active Substance: AMOXICILLIN
     Indication: PNEUMONIA
     Dosage: UNK

REACTIONS (2)
  - Candida infection [Recovering/Resolving]
  - Pneumonia [Recovering/Resolving]
